FAERS Safety Report 16479331 (Version 3)
Quarter: 2019Q3

REPORT INFORMATION
  Report Type: Not Available
  Country: US (occurrence: US)
  Receive Date: 20190626
  Receipt Date: 20190703
  Transmission Date: 20191004
  Serious: Yes (Death, Hospitalization, Other)
  Sender: FDA-Public Use
  Company Number: US-NEUROCRINE BIOSCIENCES INC.-2019NBI01634

PATIENT
  Age: 78 Year
  Sex: Female

DRUGS (8)
  1. INGREZZA [Suspect]
     Active Substance: VALBENAZINE
     Indication: TARDIVE DYSKINESIA
     Route: 048
     Dates: start: 20190204, end: 20190423
  2. LYRICA [Concomitant]
     Active Substance: PREGABALIN
     Indication: PAIN
     Route: 048
  3. CYMBALTA [Concomitant]
     Active Substance: DULOXETINE HYDROCHLORIDE
     Indication: PAIN
  4. INGREZZA [Suspect]
     Active Substance: VALBENAZINE
     Route: 048
     Dates: start: 20190424, end: 20190620
  5. LAMICTAL [Concomitant]
     Active Substance: LAMOTRIGINE
     Route: 048
  6. CYMBALTA [Concomitant]
     Active Substance: DULOXETINE HYDROCHLORIDE
     Indication: ANXIETY
     Route: 048
  7. RISPERIDONE. [Concomitant]
     Active Substance: RISPERIDONE
     Route: 048
  8. ATIVAN [Suspect]
     Active Substance: LORAZEPAM
     Indication: AGITATION
     Route: 048

REACTIONS (3)
  - Product use complaint [Unknown]
  - Therapeutic product effect incomplete [None]
  - Pneumonia aspiration [Fatal]

NARRATIVE: CASE EVENT DATE: 2019
